FAERS Safety Report 7064109-9 (Version None)
Quarter: 2010Q4

REPORT INFORMATION
  Report Type: 
  Country: None (occurrence: None)
  Receive Date: 20101019
  Receipt Date: 20101012
  Transmission Date: 20110411
  Serious: Yes (Hospitalization)
  Sender: FDA-Public Use
  Company Number: CV20100561

PATIENT
  Age: 67 Year
  Sex: Male

DRUGS (1)
  1. CEFTRIAXONE [Suspect]
     Indication: INCISION SITE INFECTION
     Dosage: 2 GM INTRAVENOUS
     Route: 042
     Dates: start: 20100924, end: 20100924

REACTIONS (4)
  - DYSPNOEA [None]
  - HYPERTENSION [None]
  - PRURITUS [None]
  - RASH [None]
